FAERS Safety Report 6488523-5 (Version None)
Quarter: 2009Q4

REPORT INFORMATION
  Report Type: 
  Country: None (occurrence: None)
  Receive Date: 20091123
  Receipt Date: 20091012
  Transmission Date: 20100525
  Serious: No
  Sender: FDA-Public Use
  Company Number: 8053193

PATIENT
  Age: 52 Year
  Sex: Male

DRUGS (3)
  1. CIMZIA [Suspect]
     Indication: CROHN'S DISEASE
     Dosage: 400 MG SC
     Route: 058
     Dates: start: 20090720
  2. COUMADIN [Suspect]
     Indication: DEEP VEIN THROMBOSIS
     Dosage: 5 MG 1/D PO
     Route: 048
     Dates: start: 19940101
  3. COUMADIN [Suspect]
     Indication: PULMONARY EMBOLISM
     Dosage: 5 MG 1/D PO
     Route: 048
     Dates: start: 19940101

REACTIONS (1)
  - INTERNATIONAL NORMALISED RATIO INCREASED [None]
